FAERS Safety Report 9806152 (Version 6)
Quarter: 2014Q2

REPORT INFORMATION
  Report Type: Report from Study
  Country: US (occurrence: US)
  Receive Date: 20140109
  Receipt Date: 20140619
  Transmission Date: 20141212
  Serious: Yes (Hospitalization)
  Sender: FDA-Public Use
  Company Number: US-ACTELION-A-US2014-93418

PATIENT
  Age: 73 Year
  Sex: Female

DRUGS (7)
  1. VENTAVIS [Suspect]
     Indication: PULMONARY ARTERIAL HYPERTENSION
     Dosage: 5 MCG, 5 TO 6 TIMES DAILY
     Route: 055
     Dates: start: 20130528, end: 201405
  2. VENTAVIS [Suspect]
     Dosage: 5 MCG, 5 TO 6 TIMES DAILY
     Route: 055
     Dates: start: 201405
  3. SILDENAFIL [Concomitant]
  4. LETAIRIS [Concomitant]
  5. OXYGEN [Concomitant]
  6. AMBIEN [Concomitant]
  7. METOLAZONE [Concomitant]
     Dosage: UNK
     Dates: start: 20140408

REACTIONS (7)
  - Diverticulitis [Unknown]
  - Gastrointestinal disorder [Unknown]
  - Rectal haemorrhage [Unknown]
  - Sialoadenitis [Recovered/Resolved]
  - Insomnia [Unknown]
  - Drug dose omission [Unknown]
  - Continuous positive airway pressure [Unknown]
